FAERS Safety Report 5306752-0 (Version None)
Quarter: 2007Q2

REPORT INFORMATION
  Report Type: 
  Country: None (occurrence: None)
  Receive Date: 20070418
  Receipt Date: 20070403
  Transmission Date: 20071010
  Serious: Yes (Other)
  Sender: FDA-Public Use
  Company Number: 15859

PATIENT
  Age: 61 Year
  Sex: Female

DRUGS (7)
  1. METHOTREXATE [Suspect]
     Indication: NON-HODGKIN'S LYMPHOMA RECURRENT
     Dosage: 30 MG/M2 OTH PU
     Route: 050
  2. ETOPOSIDE [Suspect]
     Indication: NON-HODGKIN'S LYMPHOMA RECURRENT
  3. CISPLATIN [Suspect]
     Indication: NON-HODGKIN'S LYMPHOMA RECURRENT
  4. IFOSFAMIDE [Suspect]
     Indication: NON-HODGKIN'S LYMPHOMA RECURRENT
  5. PANTOPRAZOL [Suspect]
     Indication: DRUG USE FOR UNKNOWN INDICATION
  6. CYTARABINE [Concomitant]
  7. DEXAMETHASONE 0.5MG TAB [Concomitant]

REACTIONS (9)
  - CREATININE RENAL CLEARANCE DECREASED [None]
  - DRUG INTERACTION [None]
  - DRUG TOXICITY [None]
  - LEUKOPENIA [None]
  - MUCOSAL INFLAMMATION [None]
  - PYREXIA [None]
  - RENAL FAILURE [None]
  - RENAL IMPAIRMENT [None]
  - THROMBOCYTOPENIA [None]
